FAERS Safety Report 9969620 (Version 1)
Quarter: 2014Q1

REPORT INFORMATION
  Report Type: Spontaneous
  Country: US (occurrence: None)
  Receive Date: 20140304
  Receipt Date: 20140304
  Transmission Date: 20141002
  Serious: Yes (Hospitalization)
  Sender: FDA-Public Use
  Company Number: FK201400628

PATIENT
  Age: 61 Year
  Sex: Male

DRUGS (2)
  1. LEVETIRACETAM [Suspect]
     Indication: CONVULSION
     Dosage: STARTED 9 MONTHS PRIOR TO ADMISSION
     Route: 042
  2. LAMOTRIGINE (LAMOTRIGINE) [Suspect]

REACTIONS (1)
  - Pericardial effusion [None]
